FAERS Safety Report 15606749 (Version 2)
Quarter: 2019Q1

REPORT INFORMATION
  Report Type: Report from Study
  Country: US (occurrence: US)
  Receive Date: 20181112
  Receipt Date: 20190314
  Transmission Date: 20190417
  Serious: No
  Sender: FDA-Public Use
  Company Number: PHEH2018US046849

PATIENT
  Sex: Female

DRUGS (2)
  1. ENTRESTO [Suspect]
     Active Substance: SACUBITRIL\VALSARTAN
     Dosage: 1 DF (24MG SACUBITRIL/26 MG VALSARTAN), QD (IN THE MORNING)
     Route: 048
  2. ENTRESTO [Suspect]
     Active Substance: SACUBITRIL\VALSARTAN
     Indication: PRODUCT USED FOR UNKNOWN INDICATION
     Dosage: 1 DF (24MG SACUBITRIL/26 MG VALSARTAN), BID
     Route: 048

REACTIONS (6)
  - Dyspnoea [Unknown]
  - Dizziness [Unknown]
  - Fluid retention [Unknown]
  - Bronchitis [Unknown]
  - Weight fluctuation [Unknown]
  - Hypotension [Unknown]
